FAERS Safety Report 7458892-8 (Version None)
Quarter: 2011Q2

REPORT INFORMATION
  Report Type: 
  Country: None (occurrence: None)
  Receive Date: 20110504
  Receipt Date: 20100702
  Transmission Date: 20111010
  Serious: No
  Sender: FDA-Public Use
  Company Number: US-SANOFI-AVENTIS-2010SA042437

PATIENT
  Age: 69 Year
  Sex: Female

DRUGS (1)
  1. APIDRA [Suspect]
     Dosage: DOSAGE: SS
     Route: 058
     Dates: start: 20091101

REACTIONS (2)
  - RASH PRURITIC [None]
  - FAT TISSUE INCREASED [None]
